FAERS Safety Report 17814495 (Version 1)
Quarter: 2020Q2

REPORT INFORMATION
  Report Type: Spontaneous
  Country: US (occurrence: US)
  Receive Date: 20200522
  Receipt Date: 20200522
  Transmission Date: 20200714
  Serious: Yes (Disabling)
  Sender: FDA-Public Use
  Company Number: US-HORIZON-KRY-0468-2020

PATIENT
  Age: 43 Year
  Sex: Male

DRUGS (2)
  1. KRYSTEXXA [Suspect]
     Active Substance: PEGLOTICASE
     Indication: GOUT
     Dosage: 8MG/ML EVERY 2 WEEKS
     Route: 042
     Dates: start: 20200110, end: 20200420
  2. METHOTREXATE. [Concomitant]
     Active Substance: METHOTREXATE
     Dates: start: 20200319

REACTIONS (8)
  - Drug specific antibody present [Unknown]
  - Infusion related reaction [Recovered/Resolved]
  - Inappropriate schedule of product administration [Unknown]
  - Gait inability [Unknown]
  - Gout [Recovered/Resolved]
  - Blood uric acid increased [Unknown]
  - Gout [Recovered/Resolved]
  - Infusion related reaction [Recovered/Resolved]

NARRATIVE: CASE EVENT DATE: 20200319
